FAERS Safety Report 23936900 (Version 1)
Quarter: 2024Q2

REPORT INFORMATION
  Report Type: Spontaneous
  Country: CN (occurrence: CN)
  Receive Date: 20240604
  Receipt Date: 20240604
  Transmission Date: 20240715
  Serious: Yes (Life-Threatening)
  Sender: FDA-Public Use
  Company Number: CN-BAYER-2024A080543

PATIENT
  Age: 28 Year
  Sex: Male
  Weight: 65.5 kg

DRUGS (3)
  1. ULTRAVIST [Suspect]
     Active Substance: IOPROMIDE
     Indication: Hepatic angiogram
     Dosage: 76.89 G, ONCE
     Route: 013
     Dates: start: 20240517, end: 20240517
  2. IODINE [Suspect]
     Active Substance: IODINE
     Indication: Transcatheter arterial chemoembolisation
     Dosage: 0.5 ML, QD
     Route: 013
     Dates: start: 20240517, end: 20240517
  3. CISPLATIN [Suspect]
     Active Substance: CISPLATIN
     Indication: Transcatheter arterial chemoembolisation
     Dosage: 0.5 MG, QD
     Route: 013
     Dates: start: 20240517, end: 20240517

REACTIONS (7)
  - Anaphylactic shock [Recovering/Resolving]
  - Oxygen saturation decreased [Recovering/Resolving]
  - Dyspnoea [None]
  - Blood pressure decreased [Recovering/Resolving]
  - Tachypnoea [None]
  - Pruritus [None]
  - Stridor [None]

NARRATIVE: CASE EVENT DATE: 20240517
